FAERS Safety Report 7398112-6 (Version None)
Quarter: 2011Q2

REPORT INFORMATION
  Report Type: 
  Country: None (occurrence: None)
  Receive Date: 20110406
  Receipt Date: 20110401
  Transmission Date: 20111010
  Serious: Yes (Death)
  Sender: FDA-Public Use
  Company Number: JP-CEPHALON-2011001627

PATIENT
  Age: 76 Year
  Sex: Male

DRUGS (7)
  1. BETAMETHASONE [Concomitant]
     Dates: start: 20101001
  2. SULFAMETHOXAZOLE AND TRIMETHOPRIM [Concomitant]
     Dates: start: 20101001
  3. GRANISETRON HYDROCHLORIDE [Concomitant]
  4. BENDAMUSTINE HCL [Suspect]
     Indication: B-CELL LYMPHOMA
     Route: 042
     Dates: start: 20110119, end: 20110120
  5. VALACYCLOVIR HCL [Concomitant]
  6. DEXAMETHASONE [Concomitant]
     Dates: start: 20110119
  7. AMPHOTERICIN B [Concomitant]
     Dates: start: 20101001

REACTIONS (5)
  - SUDDEN DEATH [None]
  - ABDOMINAL PAIN [None]
  - PYREXIA [None]
  - PLATELET COUNT DECREASED [None]
  - BLOOD POTASSIUM INCREASED [None]
